FAERS Safety Report 4901357-5 (Version None)
Quarter: 2006Q1

REPORT INFORMATION
  Report Type: 
  Country: None (occurrence: None)
  Receive Date: 20060206
  Receipt Date: 20060126
  Transmission Date: 20060701
  Serious: Yes (Hospitalization)
  Sender: FDA-Public Use
  Company Number: 2006CG00189

PATIENT
  Age: 46 Year
  Sex: Male

DRUGS (4)
  1. XYLOCAINE [Suspect]
     Indication: LOCAL ANAESTHESIA
     Route: 049
     Dates: start: 20060117, end: 20060117
  2. XYLOCAINE [Suspect]
     Indication: BRONCHOSCOPY
     Route: 049
     Dates: start: 20060117, end: 20060117
  3. XYLOCAINE [Suspect]
     Dosage: SMALL QUANTITY
     Route: 049
     Dates: start: 20060117, end: 20060117
  4. XYLOCAINE [Suspect]
     Dosage: SMALL QUANTITY
     Route: 049
     Dates: start: 20060117, end: 20060117

REACTIONS (4)
  - AGITATION [None]
  - CONFUSIONAL STATE [None]
  - FEELING ABNORMAL [None]
  - HYPERTONIA [None]
